FAERS Safety Report 13450626 (Version 1)
Quarter: 2017Q2

REPORT INFORMATION
  Report Type: Spontaneous
  Country: US (occurrence: US)
  Receive Date: 20170418
  Receipt Date: 20170418
  Transmission Date: 20170830
  Serious: No
  Sender: FDA-Public Use
  Company Number: US-TEVA-729444ACC

PATIENT
  Sex: Female
  Weight: 61 kg

DRUGS (1)
  1. BUPROPION EXTENDED RELEASE [Suspect]
     Active Substance: BUPROPION
     Dosage: 150 MILLIGRAM DAILY;

REACTIONS (1)
  - Flatulence [Unknown]
